FAERS Safety Report 7950217-4 (Version None)
Quarter: 2011Q4

REPORT INFORMATION
  Report Type: 
  Country: None (occurrence: None)
  Receive Date: 20111130
  Receipt Date: 20111121
  Transmission Date: 20120403
  Serious: Yes (Hospitalization)
  Sender: FDA-Public Use
  Company Number: NL-MEDIMMUNE-MEDI-0013837

PATIENT
  Sex: Female
  Weight: 7.5 kg

DRUGS (4)
  1. SYNAGIS [Suspect]
     Route: 030
     Dates: start: 20111026, end: 20111026
  2. BECLOMETHASONE DIPROPIONATE [Concomitant]
     Indication: BRONCHOPULMONARY DYSPLASIA
     Dates: start: 20110401
  3. ALBUTEROL SULFATE AUTOHALER [Concomitant]
     Indication: BRONCHOPULMONARY DYSPLASIA
     Dates: start: 20110401
  4. SYNAGIS [Suspect]
     Indication: BRONCHOPULMONARY DYSPLASIA
     Route: 030
     Dates: start: 20110902, end: 20110928

REACTIONS (3)
  - PERTUSSIS [None]
  - OXYGEN SATURATION DECREASED [None]
  - COUGH [None]
